FAERS Safety Report 22057033 (Version 1)
Quarter: 2023Q1

REPORT INFORMATION
  Report Type: Spontaneous
  Country: ES (occurrence: ES)
  Receive Date: 20230303
  Receipt Date: 20230303
  Transmission Date: 20230417
  Serious: Yes (Hospitalization)
  Sender: FDA-Public Use
  Company Number: None

PATIENT
  Age: 50 Year
  Sex: Male

DRUGS (1)
  1. OPDIVO [Suspect]
     Active Substance: NIVOLUMAB
     Indication: Tongue neoplasm malignant stage unspecified
     Dosage: 240MG
     Route: 042
     Dates: start: 20210826, end: 20221220

REACTIONS (2)
  - Diarrhoea [Unknown]
  - Enteritis [Recovering/Resolving]

NARRATIVE: CASE EVENT DATE: 20221201
